FAERS Safety Report 21686651 (Version 2)
Quarter: 2022Q4

REPORT INFORMATION
  Report Type: Spontaneous
  Country: FR (occurrence: FR)
  Receive Date: 20221206
  Receipt Date: 20221215
  Transmission Date: 20230113
  Serious: Yes (Death, Other)
  Sender: FDA-Public Use
  Company Number: FR-JNJFOC-20221155788

PATIENT
  Age: 77 Year
  Sex: Male

DRUGS (3)
  1. CYCLOPHOSPHAMIDE [Suspect]
     Active Substance: CYCLOPHOSPHAMIDE
     Indication: Plasma cell myeloma
     Dosage: 750 MG/M2, QW (1 WEEK/CYCLE; FIRST LINE TREATMENT) (TOTAL DURATION 8.3 MONTHS)
     Route: 065
  2. DEXAMETHASONE [Suspect]
     Active Substance: DEXAMETHASONE
     Indication: Plasma cell myeloma
     Dosage: 20 MG, QW (4 WEEKS/CYCLE; FIRST LINE TREATMENT) (TOTAL DURATION 8.3 MONTHS)
     Route: 065
  3. VELCADE [Suspect]
     Active Substance: BORTEZOMIB
     Indication: Plasma cell myeloma
     Dosage: 1.3 MG/M2 (0.5 WEEK, 2 WEEKS/CYCLE; FIRST LINE TREATMENT) (TOTAL DURATION 8.3 MONTHS)
     Route: 065

REACTIONS (2)
  - Septic shock [Fatal]
  - Intentional product use issue [Unknown]
